FAERS Safety Report 12845294 (Version 2)
Quarter: 2016Q4

REPORT INFORMATION
  Report Type: Spontaneous
  Country: ES (occurrence: ES)
  Receive Date: 20161013
  Receipt Date: 20161025
  Transmission Date: 20170207
  Serious: Yes (Hospitalization, Other)
  Sender: FDA-Public Use
  Company Number: ES-GILEAD-2016-0231263

PATIENT
  Age: 70 Year
  Sex: Female

DRUGS (9)
  1. ZYDELIG [Interacting]
     Active Substance: IDELALISIB
     Dosage: UNK
     Route: 065
     Dates: start: 201509, end: 201509
  2. ZYDELIG [Suspect]
     Active Substance: IDELALISIB
     Indication: B-CELL SMALL LYMPHOCYTIC LYMPHOMA
     Dosage: UNK
     Route: 065
     Dates: start: 201504, end: 201509
  3. ZYDELIG [Interacting]
     Active Substance: IDELALISIB
     Dosage: UNK
     Route: 065
     Dates: start: 2015, end: 201511
  4. OMEPRAZOLE. [Concomitant]
     Active Substance: OMEPRAZOLE
  5. GEMFIBROZIL. [Interacting]
     Active Substance: GEMFIBROZIL
     Indication: PRODUCT USED FOR UNKNOWN INDICATION
     Route: 065
  6. RITUXIMAB [Concomitant]
     Active Substance: RITUXIMAB
     Indication: B-CELL SMALL LYMPHOCYTIC LYMPHOMA
     Dosage: UNK
     Dates: start: 201504
  7. ZYDELIG [Interacting]
     Active Substance: IDELALISIB
     Dosage: 100 MG, BID
     Route: 065
     Dates: start: 201601, end: 2016
  8. ZYDELIG [Interacting]
     Active Substance: IDELALISIB
     Dosage: 100 MG, Q 12 HOURS
     Route: 065
     Dates: start: 2016
  9. INSULIN [Concomitant]
     Active Substance: INSULIN NOS
     Indication: TYPE 2 DIABETES MELLITUS
     Dosage: UNK

REACTIONS (11)
  - Urinary tract infection [Unknown]
  - Neutropenia [Recovered/Resolved]
  - Respiratory tract infection [Unknown]
  - Lymphadenopathy [Recovered/Resolved]
  - Drug interaction [Unknown]
  - Disease progression [Not Recovered/Not Resolved]
  - Cellulitis [Unknown]
  - Hypertriglyceridaemia [Unknown]
  - Neutropenia [Recovered/Resolved]
  - Diarrhoea [Recovered/Resolved]
  - Diarrhoea [Recovered/Resolved]

NARRATIVE: CASE EVENT DATE: 201509
